FAERS Safety Report 6541879-7 (Version None)
Quarter: 2010Q1

REPORT INFORMATION
  Report Type: 
  Country: None (occurrence: None)
  Receive Date: 20100119
  Receipt Date: 20100107
  Transmission Date: 20100710
  Serious: Yes (Death)
  Sender: FDA-Public Use
  Company Number: AU-PFIZER INC-2010002870

PATIENT
  Age: 21 Year
  Sex: Male

DRUGS (3)
  1. ZITHROMAX [Suspect]
     Indication: PNEUMONIA
     Dosage: 500 MG, UNK
     Route: 042
     Dates: start: 20080907
  2. ZITHROMAX [Suspect]
     Indication: SEPSIS
  3. METHOTREXATE SODIUM [Concomitant]
     Indication: COLITIS ULCERATIVE

REACTIONS (2)
  - INCORRECT DRUG ADMINISTRATION RATE [None]
  - SUDDEN DEATH [None]
